FAERS Safety Report 24167081 (Version 3)
Quarter: 2024Q4

REPORT INFORMATION
  Report Type: Spontaneous
  Country: US (occurrence: US)
  Receive Date: 20240802
  Receipt Date: 20241008
  Transmission Date: 20250115
  Serious: No
  Sender: ABBVIE
  Company Number: US-ABBVIE-5857268

PATIENT
  Age: 74 Year
  Sex: Female
  Weight: 74.843 kg

DRUGS (1)
  1. UPADACITINIB [Suspect]
     Active Substance: UPADACITINIB
     Indication: Product used for unknown indication
     Route: 048

REACTIONS (6)
  - Viral infection [Recovered/Resolved]
  - Illness [Unknown]
  - Condition aggravated [Not Recovered/Not Resolved]
  - Cough [Unknown]
  - Glomerular filtration rate abnormal [Unknown]
  - Nasopharyngitis [Unknown]

NARRATIVE: CASE EVENT DATE: 20240719
